FAERS Safety Report 15387320 (Version 3)
Quarter: 2018Q4

REPORT INFORMATION
  Report Type: Spontaneous
  Country: ES (occurrence: ES)
  Receive Date: 20180914
  Receipt Date: 20181010
  Transmission Date: 20190204
  Serious: Yes (Hospitalization)
  Sender: FDA-Public Use
  Company Number: ES-ALLERGAN-1844532US

PATIENT
  Age: 43 Year
  Sex: Male

DRUGS (3)
  1. PYLERA [Suspect]
     Active Substance: BISMUTH SUBCITRATE POTASSIUM\METRONIDAZOLE\TETRACYCLINE HYDROCHLORIDE
     Indication: HELICOBACTER INFECTION
     Dosage: 3 DF, Q6HR
     Route: 065
     Dates: start: 20180808, end: 20180818
  2. ESOMEPRAZOLE. [Concomitant]
     Active Substance: ESOMEPRAZOLE MAGNESIUM
     Indication: PRODUCT USED FOR UNKNOWN INDICATION
     Dosage: 40 UNKNOWN, Q12H
     Route: 065
  3. CONDROSAN [Concomitant]
     Dosage: 2 DF, QD
     Route: 065

REACTIONS (2)
  - Campylobacter infection [Not Recovered/Not Resolved]
  - Clostridial infection [Not Recovered/Not Resolved]
